FAERS Safety Report 4586695-0 (Version None)
Quarter: 2005Q1

REPORT INFORMATION
  Report Type: 
  Country: None (occurrence: None)
  Receive Date: 20050214
  Receipt Date: 20050127
  Transmission Date: 20050727
  Serious: Yes (Hospitalization)
  Sender: FDA-Public Use
  Company Number: DSA_25766_2005

PATIENT
  Age: 71 Year
  Sex: Female

DRUGS (4)
  1. TAVOR [Suspect]
     Dosage: DF ONCE PO
     Route: 048
     Dates: start: 20050123, end: 20050123
  2. ANAFRANIL [Suspect]
     Dosage: 1500 MG ONCE PO
     Route: 048
     Dates: start: 20050123, end: 20050123
  3. REMERGIL [Suspect]
     Dosage: 1125 MG ONCE PO
     Route: 048
     Dates: start: 20050123, end: 20050123
  4. ZYPREXA [Suspect]
     Dosage: 100 MG ONCE PO
     Route: 048
     Dates: start: 20050123, end: 20050123

REACTIONS (4)
  - DYSKINESIA [None]
  - INTENTIONAL MISUSE [None]
  - SOMNOLENCE [None]
  - TACHYCARDIA [None]
